FAERS Safety Report 5332653-8 (Version None)
Quarter: 2007Q2

REPORT INFORMATION
  Report Type: 
  Country: None (occurrence: None)
  Receive Date: 20070523
  Receipt Date: 20070515
  Transmission Date: 20071010
  Serious: No
  Sender: FDA-Public Use
  Company Number: FR-BAXTER-2007BH003287

PATIENT
  Sex: Female

DRUGS (1)
  1. KIOVIG [Suspect]
     Indication: IMMUNODEFICIENCY CONGENITAL
     Route: 042
     Dates: start: 20070329, end: 20070329

REACTIONS (1)
  - BACK PAIN [None]
